FAERS Safety Report 5409334-5 (Version None)
Quarter: 2007Q3

REPORT INFORMATION
  Report Type: 
  Country: None (occurrence: None)
  Receive Date: 20070809
  Receipt Date: 20070802
  Transmission Date: 20080115
  Serious: Yes (Other)
  Sender: FDA-Public Use
  Company Number: US-JNJFOC-20070801089

PATIENT
  Sex: Female
  Weight: 58.97 kg

DRUGS (8)
  1. FENTANYL TRANSDERMAL SYSTEM [Suspect]
     Indication: PAIN
     Route: 062
  2. FENTANYL TRANSDERMAL SYSTEM [Suspect]
     Route: 062
  3. FENTANYL TRANSDERMAL SYSTEM [Suspect]
     Route: 062
  4. FENTANYL TRANSDERMAL SYSTEM [Suspect]
     Indication: PAIN
     Route: 062
  5. FLEXERIL [Concomitant]
     Indication: MUSCLE SPASMS
     Route: 048
  6. BACLOFEN [Concomitant]
     Indication: MUSCLE SPASMS
     Route: 048
  7. PROMETRIUM [Concomitant]
     Indication: HOT FLUSH
     Route: 048
  8. NEXIUM [Concomitant]
     Indication: GASTROINTESTINAL DISORDER
     Route: 048

REACTIONS (10)
  - ARTHRITIS [None]
  - DEPRESSION [None]
  - DRUG ADMINISTERED AT INAPPROPRIATE SITE [None]
  - HEART RATE INCREASED [None]
  - INAPPROPRIATE SCHEDULE OF DRUG ADMINISTRATION [None]
  - LIP AND/OR ORAL CAVITY CANCER RECURRENT [None]
  - LYMPHOMA [None]
  - MIGRAINE [None]
  - NAUSEA [None]
  - RESTLESS LEGS SYNDROME [None]
